FAERS Safety Report 6290096-7 (Version None)
Quarter: 2009Q3

REPORT INFORMATION
  Report Type: 
  Country: None (occurrence: None)
  Receive Date: 20090730
  Receipt Date: 20081119
  Transmission Date: 20100115
  Serious: No
  Sender: FDA-Public Use
  Company Number: US-BRISTOL-MYERS SQUIBB COMPANY-14411854

PATIENT
  Age: 71 Year
  Sex: Female
  Weight: 57 kg

DRUGS (6)
  1. WARFARIN SODIUM [Suspect]
     Dosage: DEC06-UNK MAR07-UNK ALTERNATING WITH 1 1/2TABS
     Dates: start: 20061201
  2. COUMADIN [Suspect]
     Indication: ATRIAL FIBRILLATION
     Dates: start: 20050101
  3. BUSPAR [Suspect]
  4. LORAZEPAM [Concomitant]
  5. TOPROL-XL [Concomitant]
  6. DIGOXIN [Concomitant]

REACTIONS (4)
  - ABDOMINAL PAIN UPPER [None]
  - DIARRHOEA [None]
  - NAUSEA [None]
  - TINNITUS [None]
